FAERS Safety Report 8488061-4 (Version None)
Quarter: 2012Q3

REPORT INFORMATION
  Report Type: 
  Country: None (occurrence: None)
  Receive Date: 20120705
  Receipt Date: 20120625
  Transmission Date: 20120928
  Serious: Yes (Hospitalization)
  Sender: FDA-Public Use
  Company Number: FR-BRISTOL-MYERS SQUIBB COMPANY-16722290

PATIENT
  Age: 55 Year
  Sex: Male

DRUGS (3)
  1. METFORMIN HYDROCHLORIDE [Suspect]
     Route: 048
     Dates: start: 20120204, end: 20120326
  2. GLUCOPHAGE [Suspect]
     Route: 048
     Dates: end: 20120326
  3. DIAMICRON [Suspect]
     Route: 048
     Dates: end: 20120326

REACTIONS (1)
  - PANCREATITIS ACUTE [None]
